FAERS Safety Report 17727726 (Version 1)
Quarter: 2020Q2

REPORT INFORMATION
  Report Type: Report from Study
  Country: None (occurrence: US)
  Receive Date: 20200430
  Receipt Date: 20200430
  Transmission Date: 20200714
  Serious: Yes (Hospitalization, Other)
  Sender: FDA-Public Use
  Company Number: US-BIOVITRUM-2020US1126

PATIENT
  Sex: Female

DRUGS (2)
  1. KINERET [Suspect]
     Active Substance: ANAKINRA
     Indication: PERICARDITIS
     Dosage: SCHEDULE TO START BIOLOGIC DISPENSE THERAPY ON 28/FEB/2020
     Route: 058
     Dates: start: 20200228
  2. KINERET [Suspect]
     Active Substance: ANAKINRA
     Indication: SYSTEMIC LUPUS ERYTHEMATOSUS
     Dosage: SCHEDULE TO START BIOLOGIC DISPENSE THERAPY ON 28/FEB/2020
     Route: 058
     Dates: start: 20200303, end: 20200305

REACTIONS (25)
  - Depression [Unknown]
  - Decreased appetite [Unknown]
  - Nausea [Unknown]
  - Osteoporosis [Unknown]
  - Gastrooesophageal reflux disease [Unknown]
  - Pneumonia [Unknown]
  - Injection site mass [Unknown]
  - Joint stiffness [Unknown]
  - Off label use [Not Recovered/Not Resolved]
  - Anxiety [Unknown]
  - Sneezing [Unknown]
  - Vomiting [Unknown]
  - Feeding disorder [Unknown]
  - Diarrhoea [Unknown]
  - Rhinorrhoea [Unknown]
  - Inflammation [Unknown]
  - Stress fracture [Unknown]
  - Cough [Unknown]
  - Fatigue [Unknown]
  - Hypertension [Unknown]
  - Back pain [Unknown]
  - Bone pain [Unknown]
  - Product dose omission [Unknown]
  - Deformity [Unknown]
  - Injection site pain [Unknown]
